FAERS Safety Report 10235322 (Version 1)
Quarter: 2014Q2

REPORT INFORMATION
  Report Type: Spontaneous
  Country: US (occurrence: None)
  Receive Date: 20140612
  Receipt Date: 20140612
  Transmission Date: 20141212
  Serious: No
  Sender: FDA-Public Use
  Company Number: None

PATIENT
  Age: 52 Year
  Sex: Female
  Weight: 72.58 kg

DRUGS (2)
  1. CYMBALTA [Suspect]
     Indication: PAIN IN EXTREMITY
     Dosage: 1 PILL ONCE DAILY TAKEN BY MOUTH
     Route: 048
     Dates: start: 20131215, end: 20140430
  2. CYMBALTA [Suspect]
     Indication: BACK PAIN
     Dosage: 1 PILL ONCE DAILY TAKEN BY MOUTH
     Route: 048
     Dates: start: 20131215, end: 20140430

REACTIONS (11)
  - Nausea [None]
  - Dizziness [None]
  - Headache [None]
  - Sleep disorder [None]
  - Nightmare [None]
  - Crying [None]
  - Screaming [None]
  - Paraesthesia oral [None]
  - Paraesthesia [None]
  - Insomnia [None]
  - Paraesthesia [None]
